FAERS Safety Report 9457458 (Version 1)
Quarter: 2013Q3

REPORT INFORMATION
  Report Type: Spontaneous
  Country: US (occurrence: None)
  Receive Date: 20130812
  Receipt Date: 20130812
  Transmission Date: 20140515
  Serious: Yes (Life-Threatening)
  Sender: FDA-Public Use
  Company Number: None

PATIENT
  Age: 43 Year
  Sex: Female
  Weight: 69.85 kg

DRUGS (2)
  1. AMPYRA [Suspect]
     Indication: MULTIPLE SCLEROSIS
     Dosage: 1 TABLETS  TWICE DAILY TAKEN BY MOUTH
     Route: 048
     Dates: start: 20130731, end: 20130811
  2. AMPYRA [Suspect]
     Indication: GAIT DISTURBANCE
     Dosage: 1 TABLETS  TWICE DAILY TAKEN BY MOUTH
     Route: 048
     Dates: start: 20130731, end: 20130811

REACTIONS (3)
  - Irritability [None]
  - Anger [None]
  - Heart rate increased [None]
